FAERS Safety Report 7808959-7 (Version None)
Quarter: 2011Q4

REPORT INFORMATION
  Report Type: 
  Country: None (occurrence: None)
  Receive Date: 20111012
  Receipt Date: 20111010
  Transmission Date: 20120403
  Serious: Yes (Hospitalization, Other)
  Sender: FDA-Public Use
  Company Number: US-BRISTOL-MYERS SQUIBB COMPANY-15999246

PATIENT
  Age: 75 Year
  Sex: Male

DRUGS (3)
  1. COUMADIN [Suspect]
     Indication: PULMONARY EMBOLISM
     Dosage: 7.5MG;SUN,MON,WED,FRI,SAT,10MG;TUE,THUR
     Route: 048
     Dates: start: 20051101
  2. COUMADIN [Suspect]
     Indication: FACTOR V LEIDEN MUTATION
     Dosage: 7.5MG;SUN,MON,WED,FRI,SAT,10MG;TUE,THUR
     Route: 048
     Dates: start: 20051101
  3. LOVENOX [Suspect]
     Dates: start: 20110818

REACTIONS (2)
  - INTERNATIONAL NORMALISED RATIO ABNORMAL [None]
  - SPINAL COLUMN STENOSIS [None]
